FAERS Safety Report 4283809-7 (Version None)
Quarter: 2004Q1

REPORT INFORMATION
  Report Type: 
  Country: None (occurrence: None)
  Receive Date: 20040130
  Receipt Date: 20040116
  Transmission Date: 20041129
  Serious: Yes (Other)
  Sender: FDA-Public Use
  Company Number: US-JNJFOC-20040103275

PATIENT
  Age: 72 Year
  Sex: Female

DRUGS (11)
  1. INFLIXIMAB (INFLIXIMAB, RECOMBINANT) LYOPHILIZED POWDER [Suspect]
     Indication: RHEUMATOID ARTHRITIS
     Dosage: INTRAVENOUS
     Route: 042
     Dates: start: 20010329
  2. FOSAMAX [Concomitant]
  3. FOLIC ACID [Concomitant]
  4. METHOTREXATE [Concomitant]
  5. VIOXX [Concomitant]
  6. PREDNISONE [Concomitant]
  7. ACIPHEX [Concomitant]
  8. PREMPRO 14/14 [Concomitant]
  9. CALCIUM (CALCIUM) [Concomitant]
  10. HYDROCHLOROTHIAZIDE [Concomitant]
  11. TIAZAC [Concomitant]

REACTIONS (1)
  - BREAST CANCER [None]
